FAERS Safety Report 17187075 (Version 1)
Quarter: 2019Q4

REPORT INFORMATION
  Report Type: Spontaneous
  Country: US (occurrence: US)
  Receive Date: 20191220
  Receipt Date: 20191220
  Transmission Date: 20200122
  Serious: No
  Sender: FDA-Public Use
  Company Number: US-SLATE RUN PHARMACEUTICALS-SLTR-AE-19-124

PATIENT
  Sex: Female

DRUGS (1)
  1. 70436-002-03 POTASSIUM CHLORIDE ER TABLET USP 10MEQ (750 MG) [Suspect]
     Active Substance: POTASSIUM CHLORIDE
     Indication: HYPOKALAEMIA

REACTIONS (2)
  - Coordination abnormal [Unknown]
  - Feeling abnormal [Unknown]
